FAERS Safety Report 8501447-4 (Version None)
Quarter: 2012Q3

REPORT INFORMATION
  Report Type: 
  Country: None (occurrence: None)
  Receive Date: 20120710
  Receipt Date: 20120703
  Transmission Date: 20120928
  Serious: Yes (Hospitalization)
  Sender: FDA-Public Use
  Company Number: US-ABBOTT-12P-163-0944854-00

PATIENT
  Sex: Female
  Weight: 61.744 kg

DRUGS (6)
  1. METHOTREXATE [Concomitant]
     Indication: RHEUMATOID ARTHRITIS
  2. SYNTHROID [Concomitant]
     Indication: HYPOTHYROIDISM
  3. METHOTREXATE [Concomitant]
  4. HUMIRA [Suspect]
     Indication: RHEUMATOID ARTHRITIS
     Dates: end: 20090808
  5. HUMIRA [Suspect]
     Dates: start: 20120608
  6. ESTRASORB [Concomitant]
     Indication: HORMONE REPLACEMENT THERAPY

REACTIONS (7)
  - UPPER LIMB FRACTURE [None]
  - WRIST FRACTURE [None]
  - ROAD TRAFFIC ACCIDENT [None]
  - DRUG DOSE OMISSION [None]
  - FACE CRUSHING [None]
  - AMNESIA [None]
  - RHEUMATOID ARTHRITIS [None]
